FAERS Safety Report 23420541 (Version 1)
Quarter: 2024Q1

REPORT INFORMATION
  Report Type: Spontaneous
  Country: GB (occurrence: GB)
  Receive Date: 20240119
  Receipt Date: 20240119
  Transmission Date: 20240410
  Serious: Yes (Disabling, Other)
  Sender: FDA-Public Use
  Company Number: None

PATIENT
  Age: 71 Year
  Weight: 62 kg

DRUGS (10)
  1. CARBIDOPA\LEVODOPA [Suspect]
     Active Substance: CARBIDOPA\LEVODOPA
     Route: 065
  2. CLONAZEPAM [Concomitant]
     Active Substance: CLONAZEPAM
  3. MIRTAZAPINE [Concomitant]
     Active Substance: MIRTAZAPINE
  4. OXYCODONE [Concomitant]
     Active Substance: OXYCODONE
  5. BENSERAZIDE HYDROCHLORIDE\LEVODOPA [Concomitant]
     Active Substance: BENSERAZIDE HYDROCHLORIDE\LEVODOPA
  6. POLYETHYLENE GLYCOL 3350\POTASSIUM CHLORIDE\SODIUM BICARBONATE\SODIUM [Concomitant]
     Active Substance: POLYETHYLENE GLYCOL 3350\POTASSIUM CHLORIDE\SODIUM BICARBONATE\SODIUM CHLORIDE
  7. FINASTERIDE [Concomitant]
     Active Substance: FINASTERIDE
  8. RIVASTIGMINE [Suspect]
     Active Substance: RIVASTIGMINE
     Route: 065
  9. THEICAL-D3 [Concomitant]
  10. PREGABALIN [Concomitant]
     Active Substance: PREGABALIN

REACTIONS (1)
  - Drug interaction [Recovered/Resolved]
